FAERS Safety Report 18238254 (Version 4)
Quarter: 2020Q4

REPORT INFORMATION
  Report Type: Report from Study
  Country: US (occurrence: US)
  Receive Date: 20200907
  Receipt Date: 20201112
  Transmission Date: 20210113
  Serious: Yes (Life-Threatening, Disabling, Other)
  Sender: FDA-Public Use
  Company Number: US-ROCHE-2671246

PATIENT
  Age: 63 Year
  Sex: Female
  Weight: 108.9 kg

DRUGS (60)
  1. ZOSYN [Concomitant]
     Active Substance: PIPERACILLIN SODIUM\TAZOBACTAM SODIUM
     Indication: PERITONITIS
  2. FLUCONAZOLE. [Concomitant]
     Active Substance: FLUCONAZOLE
  3. ALBUMIN [Concomitant]
     Active Substance: ALBUMIN HUMAN
     Indication: SHOCK
     Dates: start: 20200829, end: 20200829
  4. ANCEF (UNITED STATES) [Concomitant]
     Indication: ABDOMINAL INFECTION
     Dates: start: 20200828
  5. LEVOPHED [Concomitant]
     Active Substance: NOREPINEPHRINE BITARTRATE
     Indication: SEPSIS
     Dates: start: 20200827, end: 20200829
  6. LOPRESSOR [Concomitant]
     Active Substance: METOPROLOL TARTRATE
     Indication: HYPERTENSION
     Dates: start: 20200901
  7. SOLU-MEDROL [Concomitant]
     Active Substance: METHYLPREDNISOLONE SODIUM SUCCINATE
     Indication: PNEUMONIA
     Dates: start: 20200731, end: 20200804
  8. DELTASONE [Concomitant]
     Active Substance: PREDNISONE
     Dates: start: 20200903
  9. OMNIPAQUE [Concomitant]
     Active Substance: IOHEXOL
     Dates: start: 20200905, end: 20200905
  10. DEFINITY [Concomitant]
     Active Substance: PERFLUTREN
     Dates: start: 20200827, end: 20200827
  11. HUMALOG [Concomitant]
     Active Substance: INSULIN LISPRO
     Indication: HYPERGLYCAEMIA
     Dosage: 1 U
     Dates: start: 20200828, end: 20200828
  12. ALDACTONE [Concomitant]
     Active Substance: SPIRONOLACTONE
     Dates: start: 20200906, end: 20200908
  13. TESSALON [Concomitant]
     Active Substance: BENZONATATE
     Indication: COUGH
     Dates: start: 20200712, end: 20200808
  14. MORPHINE [Concomitant]
     Active Substance: MORPHINE
     Indication: PAIN
     Dates: start: 20200711, end: 20200808
  15. FONDAPARINUX [Concomitant]
     Active Substance: FONDAPARINUX
  16. MUCINEX [Concomitant]
     Active Substance: GUAIFENESIN
     Indication: COUGH
  17. VISINE (UNITED STATES) [Concomitant]
     Indication: HYPERSENSITIVITY
     Dosage: 1 OTHER
     Dates: start: 20200715, end: 20200808
  18. OMNIPAQUE [Concomitant]
     Active Substance: IOHEXOL
     Dates: start: 20200831, end: 20200831
  19. SOLU-CORTEF [Concomitant]
     Active Substance: HYDROCORTISONE SODIUM SUCCINATE
     Indication: DYSPNOEA
     Dates: start: 20200827, end: 20200830
  20. SODIUM CHLORIDE. [Concomitant]
     Active Substance: SODIUM CHLORIDE
     Dates: start: 20200827, end: 20200827
  21. SODIUM CHLORIDE. [Concomitant]
     Active Substance: SODIUM CHLORIDE
     Dates: start: 20200904, end: 20200904
  22. MAGNESIUM SULFATE. [Concomitant]
     Active Substance: MAGNESIUM SULFATE
     Dates: start: 20200903, end: 20200904
  23. TOCILIZUMAB. [Suspect]
     Active Substance: TOCILIZUMAB
     Indication: COVID-19 PNEUMONIA
     Dosage: DATE OF MOST RECENT DOSE OF TOCILIZUMAB: 11/JUL/2020 AT 23:34 (100 ML)
     Route: 042
     Dates: start: 20200711
  24. REMDESIVIR. [Suspect]
     Active Substance: REMDESIVIR
     Indication: COVID-19 PNEUMONIA
     Dosage: RDV LOADING DOSE ON DAY 1, AND A ONCE-DAILY MAINTENANCE DOSE OF REMDESIVIR FROM DAYS 2-10?DATE OF MO
     Route: 042
     Dates: start: 20200711
  25. LOVENOX [Concomitant]
     Active Substance: ENOXAPARIN SODIUM
     Indication: DEEP VEIN THROMBOSIS
     Dates: start: 20200711, end: 20200805
  26. LOVENOX [Concomitant]
     Active Substance: ENOXAPARIN SODIUM
     Dates: start: 20200827, end: 20200830
  27. LOVENOX [Concomitant]
     Active Substance: ENOXAPARIN SODIUM
     Dates: start: 20200906
  28. FLEXERIL [Concomitant]
     Active Substance: CYCLOBENZAPRINE HYDROCHLORIDE
     Indication: MUSCLE SPASMS
     Dates: start: 20200814
  29. MUCINEX [Concomitant]
     Active Substance: GUAIFENESIN
     Indication: NASAL CONGESTION
     Dates: start: 20200716, end: 20200802
  30. MIRALAX [Concomitant]
     Active Substance: POLYETHYLENE GLYCOL 3350
     Indication: CONSTIPATION
     Dates: start: 20200711, end: 20200808
  31. DIPRIVAN [Concomitant]
     Active Substance: PROPOFOL
     Indication: SEDATION
     Dosage: 30 OTHER
     Dates: start: 20200827, end: 20200828
  32. POTASSIUM PHOSPHATE [Concomitant]
     Active Substance: POTASSIUM PHOSPHATE
     Dosage: 20 OTHER
     Dates: start: 20200901, end: 20200901
  33. DIFLUCAN [Concomitant]
     Active Substance: FLUCONAZOLE
     Indication: ANTIFUNGAL PROPHYLAXIS
     Dates: start: 20200828, end: 20200830
  34. TOPROL XL [Concomitant]
     Active Substance: METOPROLOL SUCCINATE
     Indication: HYPERTENSION
     Dates: start: 20200711
  35. SOLU-MEDROL [Concomitant]
     Active Substance: METHYLPREDNISOLONE SODIUM SUCCINATE
     Dates: start: 20200804, end: 20200806
  36. PERIDEX [Concomitant]
     Active Substance: CHLORHEXIDINE GLUCONATE
     Indication: DENTAL DISORDER PROPHYLAXIS
     Dates: start: 20200827, end: 20200828
  37. SODIUM PHOSPHATE [Concomitant]
     Active Substance: SODIUM PHOSPHATE
     Dosage: 20 OTHER
     Dates: start: 20200904, end: 20200904
  38. IMODIUM [Concomitant]
     Active Substance: LOPERAMIDE HYDROCHLORIDE
     Dates: start: 20200906
  39. COMBIVENT RESPIMAT [Concomitant]
     Active Substance: ALBUTEROL SULFATE\IPRATROPIUM BROMIDE
     Indication: DYSPNOEA
     Dosage: 2 PUFF
     Dates: start: 20200805, end: 20200805
  40. LUMASON [Concomitant]
     Active Substance: SULFUR HEXAFLUORIDE
     Dates: start: 20200730, end: 20200730
  41. DELTASONE [Concomitant]
     Active Substance: PREDNISONE
     Indication: PNEUMONIA
     Dates: start: 20200807, end: 20200808
  42. VITAMIN D3 [Concomitant]
     Active Substance: CHOLECALCIFEROL
     Indication: VITAMIN D DEFICIENCY
     Dosage: 2000 U
     Dates: start: 20200711, end: 20200808
  43. MORPHINE [Concomitant]
     Active Substance: MORPHINE
     Indication: HEADACHE
  44. OXYCODONE [Concomitant]
     Active Substance: OXYCODONE
     Indication: ARTHRALGIA
     Dates: start: 20200711, end: 20200808
  45. OXYGEN. [Concomitant]
     Active Substance: OXYGEN
     Indication: DYSPNOEA
     Dosage: 2 OTHERS
     Dates: start: 20200808
  46. OCEAN SALINE NASAL SPRAY [Concomitant]
     Active Substance: SODIUM CHLORIDE
     Dosage: 2 SPRAY
     Dates: start: 20200713, end: 20200808
  47. LASIX [Concomitant]
     Active Substance: FUROSEMIDE
     Indication: OEDEMA
     Dates: start: 20200807, end: 20200807
  48. LASIX [Concomitant]
     Active Substance: FUROSEMIDE
     Dates: start: 20200906, end: 20200908
  49. TUMS [Concomitant]
     Active Substance: CALCIUM CARBONATE
     Indication: DYSPEPSIA
     Dates: start: 20200906, end: 20200906
  50. IMODIUM [Concomitant]
     Active Substance: LOPERAMIDE HYDROCHLORIDE
     Indication: DIARRHOEA
     Dates: start: 20200712, end: 20200808
  51. OXYCODONE [Concomitant]
     Active Substance: OXYCODONE
     Indication: PAIN
  52. CIPRO [Concomitant]
     Active Substance: CIPROFLOXACIN HYDROCHLORIDE
     Indication: INTESTINAL PERFORATION
     Dates: start: 20200829, end: 20200830
  53. FLAGYL [Concomitant]
     Active Substance: METRONIDAZOLE\METRONIDAZOLE HYDROCHLORIDE
     Indication: INTESTINAL PERFORATION
     Dates: start: 20200829, end: 20200901
  54. SENOKOT [Concomitant]
     Active Substance: SENNOSIDES
     Indication: CONSTIPATION
     Dates: start: 20200716, end: 20200808
  55. LACTATED RINGERS SOLUTION [Concomitant]
     Active Substance: CALCIUM CHLORIDE\POTASSIUM CHLORIDE\SODIUM CHLORIDE\SODIUM LACTATE
     Indication: HYPOTENSION
     Dosage: 50 OTHER
     Dates: start: 20200827, end: 20200831
  56. TUMS [Concomitant]
     Active Substance: CALCIUM CARBONATE
     Dates: start: 20200907
  57. DECADRON [Concomitant]
     Active Substance: DEXAMETHASONE
     Indication: RESPIRATORY FAILURE
     Dates: start: 20200714
  58. OCEAN SALINE NASAL SPRAY [Concomitant]
     Active Substance: SODIUM CHLORIDE
     Indication: NASAL DRYNESS
     Dosage: 2 SPRAY
     Dates: start: 20200713, end: 20200808
  59. ZOSYN [Concomitant]
     Active Substance: PIPERACILLIN SODIUM\TAZOBACTAM SODIUM
     Indication: INTESTINAL PERFORATION
     Dates: start: 20200827, end: 20200829
  60. ROXICODONE [Concomitant]
     Active Substance: OXYCODONE HYDROCHLORIDE
     Indication: PAIN
     Dates: start: 20200904

REACTIONS (5)
  - Pulmonary fibrosis [Not Recovered/Not Resolved]
  - Septic shock [Recovered/Resolved]
  - Thrombocytopenia [Not Recovered/Not Resolved]
  - Gastric ulcer perforation [Not Recovered/Not Resolved]
  - Abdominal sepsis [Recovered/Resolved]

NARRATIVE: CASE EVENT DATE: 20200826
